FAERS Safety Report 5948450-6 (Version None)
Quarter: 2008Q4

REPORT INFORMATION
  Report Type: 
  Country: None (occurrence: None)
  Receive Date: 20081110
  Receipt Date: 20081110
  Transmission Date: 20090506
  Serious: Yes (Other)
  Sender: FDA-Public Use
  Company Number: None

PATIENT
  Age: 30 Year
  Sex: Female
  Weight: 54.8852 kg

DRUGS (1)
  1. CYMBALTA [Suspect]
     Indication: FIBROMYALGIA
     Dosage: 40MG ONCE A DAY PO
     Route: 048
     Dates: start: 20080720, end: 20081020

REACTIONS (9)
  - BALANCE DISORDER [None]
  - DISTURBANCE IN ATTENTION [None]
  - INSOMNIA [None]
  - MEMORY IMPAIRMENT [None]
  - MENORRHAGIA [None]
  - PARAESTHESIA [None]
  - SUICIDAL IDEATION [None]
  - VERTIGO [None]
  - WITHDRAWAL SYNDROME [None]
